FAERS Safety Report 14973626 (Version 2)
Quarter: 2018Q3

REPORT INFORMATION
  Report Type: Spontaneous
  Country: FR (occurrence: FR)
  Receive Date: 20180605
  Receipt Date: 20180703
  Transmission Date: 20181010
  Serious: Yes (Death, Hospitalization)
  Sender: FDA-Public Use
  Company Number: FR-SA-2018SA147663

PATIENT
  Sex: Male

DRUGS (13)
  1. FABRAZYME [Suspect]
     Active Substance: AGALSIDASE BETA
     Indication: FABRY^S DISEASE
     Dosage: UNK, QOW
     Route: 041
     Dates: start: 2014
  2. KARDEGIC [Concomitant]
     Active Substance: ASPIRIN DL-LYSINE
  3. DIFFU K [Concomitant]
     Active Substance: POTASSIUM CHLORIDE
  4. RISPERIDONE. [Concomitant]
     Active Substance: RISPERIDONE
  5. ATORVASTATIN [Concomitant]
     Active Substance: ATORVASTATIN
  6. LASILIX [FUROSEMIDE] [Concomitant]
  7. SERETIDE [Concomitant]
     Active Substance: FLUTICASONE PROPIONATE\SALMETEROL XINAFOATE
  8. VENLAFAXIN [Concomitant]
     Active Substance: VENLAFAXINE HYDROCHLORIDE
  9. ATENOLOL. [Concomitant]
     Active Substance: ATENOLOL
  10. COLCHIMAX [COLCHICINE;PAPAVER SOMNIFERUM POWDER;TIEMONIUM METHYLSULPHA [Concomitant]
  11. EUPANTOL [Concomitant]
     Active Substance: PANTOPRAZOLE SODIUM
  12. GARDENALE [PHENOBARBITAL] [Concomitant]
  13. ADENURIC [Concomitant]
     Active Substance: FEBUXOSTAT

REACTIONS (5)
  - Disturbance in attention [None]
  - Asthenia [None]
  - Facial asymmetry [None]
  - Disease progression [Fatal]
  - Somnolence [None]

NARRATIVE: CASE EVENT DATE: 201805
